FAERS Safety Report 7513161-2 (Version None)
Quarter: 2011Q2

REPORT INFORMATION
  Report Type: 
  Country: None (occurrence: None)
  Receive Date: 20110531
  Receipt Date: 20110524
  Transmission Date: 20111010
  Serious: Yes (Hospitalization, Other)
  Sender: FDA-Public Use
  Company Number: JP-MERCK-1105USA03370

PATIENT
  Age: 77 Year
  Sex: Female

DRUGS (11)
  1. JANUVIA [Suspect]
     Indication: DIABETES MELLITUS
     Route: 048
     Dates: start: 20110224, end: 20110426
  2. AMARYL [Concomitant]
     Indication: DIABETES MELLITUS
     Route: 048
     Dates: start: 20100224
  3. SYMMETREL [Concomitant]
     Indication: PARKINSON'S DISEASE
     Route: 048
  4. PRAVASTATIN SODIUM [Concomitant]
     Indication: HYPERLIPIDAEMIA
     Route: 048
     Dates: start: 20100617
  5. MAGNESIUM SULFATE [Concomitant]
     Indication: CONSTIPATION
     Route: 048
  6. HERBESSER R [Concomitant]
     Indication: HYPERTENSION
     Route: 048
  7. ONEALFA [Concomitant]
     Indication: SPINAL COMPRESSION FRACTURE
     Route: 048
     Dates: start: 20110329
  8. MADOPAR [Concomitant]
     Indication: PARKINSON'S DISEASE
     Route: 048
  9. CONIEL [Concomitant]
     Indication: HYPERTENSION
     Route: 048
     Dates: start: 20100617
  10. ACTOS [Concomitant]
     Indication: DIABETES MELLITUS
     Route: 048
     Dates: start: 20110329
  11. METFORMIN HCL [Concomitant]
     Indication: DIABETES MELLITUS
     Route: 048
     Dates: start: 20100813

REACTIONS (2)
  - NEUTROPENIA [None]
  - SPINAL COMPRESSION FRACTURE [None]
